FAERS Safety Report 10556677 (Version 1)
Quarter: 2014Q4

REPORT INFORMATION
  Report Type: Spontaneous
  Country: US (occurrence: US)
  Receive Date: 20141031
  Receipt Date: 20141031
  Transmission Date: 20150529
  Serious: No
  Sender: FDA-Public Use
  Company Number: US-PFIZER INC-2014299377

PATIENT
  Sex: Female

DRUGS (1)
  1. NEURONTIN [Suspect]
     Active Substance: GABAPENTIN
     Indication: NEUROPATHY PERIPHERAL
     Dosage: UNK
     Dates: start: 2014

REACTIONS (5)
  - Depression [Unknown]
  - Tearfulness [Unknown]
  - Conversion disorder [Unknown]
  - Mental status changes [Unknown]
  - Anxiety [Unknown]

NARRATIVE: CASE EVENT DATE: 2014
